FAERS Safety Report 5789490-X (Version None)
Quarter: 2008Q2

REPORT INFORMATION
  Report Type: 
  Country: None (occurrence: None)
  Receive Date: 20080623
  Receipt Date: 20080610
  Transmission Date: 20081010
  Serious: Yes (Other)
  Sender: FDA-Public Use
  Company Number: 49293

PATIENT
  Age: 39 Year
  Sex: Female

DRUGS (1)
  1. DICYCLOMINE INJ., USP 2ML/VIAL 10 MG/ML - BEDFORD LABS,INC. [Suspect]
     Dates: start: 20080610

REACTIONS (1)
  - MEDICATION ERROR [None]
